FAERS Safety Report 18866466 (Version 1)
Quarter: 2021Q1

REPORT INFORMATION
  Report Type: Spontaneous
  Country: US (occurrence: US)
  Receive Date: 20210208
  Receipt Date: 20210208
  Transmission Date: 20210420
  Serious: No
  Sender: FDA-Public Use
  Company Number: US-ELI_LILLY_AND_COMPANY-US202101013378

PATIENT
  Age: 62 Year
  Sex: Male

DRUGS (1)
  1. TRULICITY [Suspect]
     Active Substance: DULAGLUTIDE
     Indication: PRODUCT USED FOR UNKNOWN INDICATION
     Dosage: 1.5 MG, UNKNOWN
     Route: 065
     Dates: start: 202004, end: 20210114

REACTIONS (7)
  - Chest pain [Unknown]
  - Dyspnoea [Unknown]
  - Flatulence [Unknown]
  - Dysgeusia [Unknown]
  - Feeling abnormal [Unknown]
  - Nausea [Unknown]
  - Blood glucose increased [Unknown]

NARRATIVE: CASE EVENT DATE: 202101
